FAERS Safety Report 15558375 (Version 2)
Quarter: 2018Q4

REPORT INFORMATION
  Report Type: Spontaneous
  Country: US (occurrence: US)
  Receive Date: 20181028
  Receipt Date: 20181130
  Transmission Date: 20190205
  Serious: No
  Sender: FDA-Public Use
  Company Number: US-JNJFOC-20181022079

PATIENT
  Age: 53 Year
  Sex: Male

DRUGS (11)
  1. VICODIN [Concomitant]
     Active Substance: ACETAMINOPHEN\HYDROCODONE BITARTRATE
     Dosage: 5-500 MG
     Route: 065
  2. TRIAMCINOLON                       /00031901/ [Concomitant]
     Route: 065
  3. CALCIPOTRIENE. [Concomitant]
     Active Substance: CALCIPOTRIENE
     Route: 065
  4. PREDNISONE. [Concomitant]
     Active Substance: PREDNISONE
     Route: 065
  5. ENBREL [Concomitant]
     Active Substance: ETANERCEPT
     Route: 065
  6. TREMFYA [Suspect]
     Active Substance: GUSELKUMAB
     Indication: PSORIASIS
     Dosage: WEEK 4, THEN EVERY 8 WEEKS THEREAFTER.
     Route: 058
  7. FISH OIL [Concomitant]
     Active Substance: FISH OIL
     Route: 065
  8. FLUOCINONIDE. [Concomitant]
     Active Substance: FLUOCINONIDE
     Route: 065
  9. TREMFYA [Suspect]
     Active Substance: GUSELKUMAB
     Indication: PSORIATIC ARTHROPATHY
     Dosage: WEEK 4, THEN EVERY 8 WEEKS THEREAFTER.
     Route: 058
  10. DESONIDE. [Concomitant]
     Active Substance: DESONIDE
     Route: 065
  11. CLOBETASOL [Concomitant]
     Active Substance: CLOBETASOL
     Route: 065

REACTIONS (1)
  - Drug ineffective [Unknown]

NARRATIVE: CASE EVENT DATE: 20180915
